FAERS Safety Report 4613815-1 (Version None)
Quarter: 2005Q1

REPORT INFORMATION
  Report Type: 
  Country: None (occurrence: None)
  Receive Date: 20050315
  Receipt Date: 20040917
  Transmission Date: 20050727
  Serious: Yes (Death)
  Sender: FDA-Public Use
  Company Number: 8874

PATIENT
  Age: 63 Year
  Sex: Female

DRUGS (9)
  1. METHOTREXATE [Suspect]
     Indication: RHEUMATOID ARTHRITIS
     Dosage: 7.5 MG FREQ UNK
     Route: 048
     Dates: start: 20040506
  2. ACETYLSALICYLIC ACID SRT [Concomitant]
  3. FRUSEMIDE [Concomitant]
  4. METOPROLOL [Concomitant]
  5. SIMVASTATIN [Concomitant]
  6. RAMIPRIL [Concomitant]
  7. ROFECOXIB [Concomitant]
  8. ACYCLOVIR [Concomitant]
  9. AMOXICILLIN [Concomitant]

REACTIONS (1)
  - CARDIAC FAILURE [None]
